FAERS Safety Report 23310072 (Version 1)
Quarter: 2023Q4

REPORT INFORMATION
  Report Type: Spontaneous
  Country: US (occurrence: US)
  Receive Date: 20231218
  Receipt Date: 20231218
  Transmission Date: 20240110
  Serious: No
  Sender: FDA-Public Use
  Company Number: US-SA-SAC20231214001251

PATIENT
  Sex: Male

DRUGS (14)
  1. DUPIXENT [Suspect]
     Active Substance: DUPILUMAB
     Indication: Dermatitis atopic
     Dosage: 300 MG, QOW
     Route: 058
     Dates: start: 20220324
  2. ALBUTEROL SULFATE [Concomitant]
     Active Substance: ALBUTEROL SULFATE
  3. ATORVASTATIN [Concomitant]
     Active Substance: ATORVASTATIN
  4. BREO ELLIPTA [Concomitant]
     Active Substance: FLUTICASONE FUROATE\VILANTEROL TRIFENATATE
  5. METHYLPREDNISOLONE [Concomitant]
     Active Substance: METHYLPREDNISOLONE
  6. CARVEDILOL [Concomitant]
     Active Substance: CARVEDILOL
  7. CLOBETASOL [Concomitant]
     Active Substance: CLOBETASOL
  8. HYDROCHLOROTHIAZIDE [Concomitant]
     Active Substance: HYDROCHLOROTHIAZIDE
  9. GABAPENTIN [Concomitant]
     Active Substance: GABAPENTIN
  10. IPRATROPIUM [Concomitant]
     Active Substance: IPRATROPIUM
  11. KETOROLAC [Concomitant]
     Active Substance: KETOROLAC TROMETHAMINE
  12. LOSARTAN POTASSIUM [Concomitant]
     Active Substance: LOSARTAN POTASSIUM
  13. MESALAMINE [Concomitant]
     Active Substance: MESALAMINE
  14. PREDNISOLONE [Concomitant]
     Active Substance: PREDNISOLONE

REACTIONS (1)
  - Skin irritation [Not Recovered/Not Resolved]
